FAERS Safety Report 14646152 (Version 2)
Quarter: 2018Q1

REPORT INFORMATION
  Report Type: Report from Study
  Country: None (occurrence: NL)
  Receive Date: 20180316
  Receipt Date: 20180323
  Transmission Date: 20180509
  Serious: Yes (Death, Life-Threatening)
  Sender: FDA-Public Use
  Company Number: NL-ABBVIE-18K-114-2288791-00

PATIENT
  Sex: Female

DRUGS (1)
  1. DUODOPA [Suspect]
     Active Substance: CARBIDOPA\LEVODOPA
     Indication: PARKINSON^S DISEASE
     Dosage: MD: 12.8, CD: 1.6, ED: 1.2
     Route: 050
     Dates: start: 20080827

REACTIONS (6)
  - Dyskinesia [Not Recovered/Not Resolved]
  - Colorectal cancer [Fatal]
  - Weight decreased [Not Recovered/Not Resolved]
  - Decreased appetite [Not Recovered/Not Resolved]
  - Terminal state [Not Recovered/Not Resolved]
  - Dehydration [Not Recovered/Not Resolved]
